FAERS Safety Report 15814483 (Version 2)
Quarter: 2019Q1

REPORT INFORMATION
  Report Type: Spontaneous
  Country: IE (occurrence: IE)
  Receive Date: 20190111
  Receipt Date: 20190123
  Transmission Date: 20190417
  Serious: Yes (Other)
  Sender: FDA-Public Use
  Company Number: PHHY2019IE004251

PATIENT
  Age: 66 Year
  Sex: Female
  Weight: 67.4 kg

DRUGS (2)
  1. PANTUP [Suspect]
     Active Substance: PANTOPRAZOLE SODIUM
     Indication: DUODENAL ULCER
     Dosage: 40 MG, UNK
     Route: 048
     Dates: start: 20181223
  2. PERINDOPRIL (G) [Concomitant]
     Active Substance: PERINDOPRIL
     Indication: HYPERTENSION
     Route: 048
     Dates: start: 20160501

REACTIONS (3)
  - Diarrhoea [Recovered/Resolved]
  - Flatulence [Recovered/Resolved]
  - Fatigue [Recovered/Resolved]

NARRATIVE: CASE EVENT DATE: 201812
